FAERS Safety Report 21155475 (Version 2)
Quarter: 2022Q3

REPORT INFORMATION
  Report Type: Report from Study
  Country: CN (occurrence: CN)
  Receive Date: 20220801
  Receipt Date: 20220802
  Transmission Date: 20221026
  Serious: Yes (Hospitalization, Other)
  Sender: FDA-Public Use
  Company Number: US-SUN PHARMACEUTICAL INDUSTRIES LTD-2022R1-338206

PATIENT
  Age: 54 Year
  Sex: Male
  Weight: 54 kg

DRUGS (5)
  1. SPIRONOLACTONE [Suspect]
     Active Substance: SPIRONOLACTONE
     Indication: Oedema peripheral
     Dosage: 40 MILLIGRAM, BID
     Route: 048
     Dates: start: 202011, end: 20220401
  2. HYDROCHLOROTHIAZIDE [Suspect]
     Active Substance: HYDROCHLOROTHIAZIDE
     Indication: Oedema peripheral
     Dosage: 10 MILLIGRAM, BID
     Route: 048
     Dates: start: 202011, end: 20220401
  3. TAFAMIDIS [Suspect]
     Active Substance: TAFAMIDIS
     Indication: Cardiac amyloidosis
     Dosage: 61 MILLIGRAM, QD
     Route: 048
     Dates: start: 20210902, end: 20211013
  4. TORSEMIDE [Suspect]
     Active Substance: TORSEMIDE
     Indication: Oedema peripheral
     Dosage: 15 MILLIGRAM, QD
     Route: 048
     Dates: start: 20210818, end: 20210907
  5. BUMETANIDE [Suspect]
     Active Substance: BUMETANIDE
     Indication: Oedema peripheral
     Dosage: 2 MILLIGRAM, BID
     Route: 048
     Dates: start: 20210908, end: 20210928

REACTIONS (4)
  - Electrolyte imbalance [Unknown]
  - Mental disorder [Unknown]
  - Cerebral infarction [Unknown]
  - Altered state of consciousness [Unknown]

NARRATIVE: CASE EVENT DATE: 20211014
